FAERS Safety Report 10232958 (Version 1)
Quarter: 2014Q2

REPORT INFORMATION
  Report Type: Spontaneous
  Country: DE (occurrence: DE)
  Receive Date: 20140612
  Receipt Date: 20140612
  Transmission Date: 20141212
  Serious: Yes (Other)
  Sender: FDA-Public Use
  Company Number: DE-BAYER-2014-083985

PATIENT
  Age: 65 Year
  Sex: Female
  Weight: 85 kg

DRUGS (1)
  1. AVALOX [Suspect]
     Indication: PNEUMONIA
     Dosage: 400 MG, DAILY DOSE
     Route: 042
     Dates: start: 20140501, end: 20140506

REACTIONS (2)
  - Sinus bradycardia [Unknown]
  - Long QT syndrome [Unknown]
